FAERS Safety Report 5636299-3 (Version None)
Quarter: 2008Q1

REPORT INFORMATION
  Report Type: 
  Country: None (occurrence: None)
  Receive Date: 20080225
  Receipt Date: 20080211
  Transmission Date: 20080703
  Serious: Yes (Life-Threatening)
  Sender: FDA-Public Use
  Company Number: FR-BAYER-200812971GPV

PATIENT
  Age: 85 Year
  Sex: Female

DRUGS (12)
  1. CIPROFLOXACIN [Suspect]
     Indication: URINARY TRACT INFECTION
     Route: 042
     Dates: start: 20071205, end: 20071206
  2. LOVENOX [Suspect]
     Indication: DRUG USE FOR UNKNOWN INDICATION
     Route: 058
     Dates: end: 20071209
  3. REVLIMID [Suspect]
     Indication: MYELODYSPLASTIC SYNDROME
     Route: 048
     Dates: start: 20071119, end: 20071206
  4. XYZAL [Suspect]
     Indication: DRUG USE FOR UNKNOWN INDICATION
     Route: 048
     Dates: start: 20071124, end: 20071213
  5. TRIFLUCAN [Suspect]
     Indication: URINARY TRACT INFECTION
     Route: 042
     Dates: start: 20071206, end: 20071210
  6. ALLOPURINOL SANDOZ [Suspect]
     Indication: DRUG USE FOR UNKNOWN INDICATION
     Route: 048
     Dates: end: 20071210
  7. ASPEGIC 1000 [Suspect]
     Indication: DRUG USE FOR UNKNOWN INDICATION
     Route: 048
     Dates: end: 20071210
  8. DEBRIDAT [Suspect]
     Indication: DRUG USE FOR UNKNOWN INDICATION
     Dosage: UNIT DOSE: 25 MG
     Route: 048
  9. CORTANCYL [Suspect]
     Indication: DRUG USE FOR UNKNOWN INDICATION
     Route: 048
     Dates: start: 20061001
  10. NEXIUM [Suspect]
     Indication: DRUG USE FOR UNKNOWN INDICATION
     Route: 048
  11. ROCEPHIN [Suspect]
     Indication: URINARY TRACT INFECTION
     Route: 042
     Dates: start: 20071205, end: 20071210
  12. FASTURTEC [Suspect]
     Indication: HYPERURICAEMIA
     Dosage: UNIT DOSE: 7.5 MG
     Route: 042
     Dates: start: 20071207, end: 20071207

REACTIONS (1)
  - THROMBOCYTOPENIA [None]
